FAERS Safety Report 19213167 (Version 1)
Quarter: 2021Q2

REPORT INFORMATION
  Report Type: Spontaneous
  Country: BR (occurrence: BR)
  Receive Date: 20210504
  Receipt Date: 20210504
  Transmission Date: 20210717
  Serious: Yes (Other)
  Sender: FDA-Public Use
  Company Number: BR-BRISTOL-MYERS SQUIBB COMPANY-BMS-2021-041212

PATIENT
  Age: 75 Year
  Sex: Female

DRUGS (4)
  1. ORENCIA [Suspect]
     Active Substance: ABATACEPT
     Indication: RHEUMATOID ARTHRITIS
     Dosage: 125 MILLIGRAM, QWK
     Route: 058
  2. COVID?19 VACCINE NOS. [Concomitant]
     Active Substance: COVID-19 VACCINE NOS
     Indication: PRODUCT USED FOR UNKNOWN INDICATION
     Dosage: UNK
     Route: 065
     Dates: start: 20210320, end: 20210320
  3. COVID?19 VACCINE NOS. [Concomitant]
     Active Substance: COVID-19 VACCINE NOS
     Dosage: UNK
     Route: 065
     Dates: start: 20210414, end: 20210414
  4. ORENCIA [Suspect]
     Active Substance: ABATACEPT
     Indication: RHEUMATOID ARTHRITIS
     Dosage: 250 MILLIGRAM
     Route: 042

REACTIONS (15)
  - Prescribed underdose [Unknown]
  - Hand deformity [Unknown]
  - Dizziness [Unknown]
  - Headache [Unknown]
  - Tooth disorder [Unknown]
  - Injection site discolouration [Unknown]
  - Rhinorrhoea [Unknown]
  - Gingival cyst [Unknown]
  - Immunodeficiency [Unknown]
  - Nasal congestion [Unknown]
  - Suspected COVID-19 [Unknown]
  - Hypersensitivity [Unknown]
  - Oropharyngeal pain [Unknown]
  - Pyrexia [Unknown]
  - Secretion discharge [Unknown]

NARRATIVE: CASE EVENT DATE: 202104
